FAERS Safety Report 10032816 (Version 2)
Quarter: 2014Q1

REPORT INFORMATION
  Report Type: Spontaneous
  Country: US (occurrence: US)
  Receive Date: 20140324
  Receipt Date: 20140324
  Transmission Date: 20141002
  Serious: No
  Sender: FDA-Public Use
  Company Number: US-B.I. PHARMACEUTICALS,INC./RIDGEFIELD-2013-BI-09135BP

PATIENT
  Age: 53 Year
  Sex: Female
  Weight: 108.86 kg

DRUGS (1)
  1. PRADAXA [Suspect]
     Indication: ANTICOAGULANT THERAPY
     Dosage: 300 MG
     Route: 065

REACTIONS (3)
  - Epistaxis [Unknown]
  - Cerebral disorder [Unknown]
  - Gastrointestinal haemorrhage [Unknown]
